FAERS Safety Report 8697144 (Version 2)
Quarter: 2013Q4

REPORT INFORMATION
  Report Type: Spontaneous
  Country: US (occurrence: US)
  Receive Date: 20120801
  Receipt Date: 20131106
  Transmission Date: 20140711
  Serious: Yes (Other)
  Sender: FDA-Public Use
  Company Number: US-009507513-1207USA010533

PATIENT
  Age: 55 Year
  Sex: Female

DRUGS (4)
  1. ZOCOR [Suspect]
  2. LIPITOR [Suspect]
     Dosage: 10 MG, UNK
     Route: 048
  3. LOVASTATIN [Suspect]
  4. ATORVASTATIN CALCIUM [Suspect]
     Dosage: 20 MG, QD
     Route: 048

REACTIONS (3)
  - Amnesia [Unknown]
  - Blood cholesterol abnormal [Unknown]
  - Drug intolerance [Unknown]
